FAERS Safety Report 13012110 (Version 7)
Quarter: 2017Q1

REPORT INFORMATION
  Report Type: Spontaneous
  Country: CO (occurrence: CO)
  Receive Date: 20161209
  Receipt Date: 20170323
  Transmission Date: 20170428
  Serious: Yes (Other)
  Sender: FDA-Public Use
  Company Number: PHHY2016CO167424

PATIENT
  Age: 63 Year
  Sex: Female
  Weight: 67 kg

DRUGS (3)
  1. NILOTINIB [Suspect]
     Active Substance: NILOTINIB
     Dosage: 150 MG, UNK
     Route: 048
     Dates: end: 20170206
  2. NILOTINIB [Suspect]
     Active Substance: NILOTINIB
     Indication: CHRONIC MYELOID LEUKAEMIA
     Dosage: 400 MG, Q12H (EVERY 12 HOURS)
     Route: 048
     Dates: start: 201403
  3. NILOTINIB [Suspect]
     Active Substance: NILOTINIB
     Dosage: 300 MG, Q12H (EVERY 12 HOURS)
     Route: 048
     Dates: start: 201403

REACTIONS (22)
  - Malignant neoplasm progression [Unknown]
  - Cytogenetic analysis abnormal [Unknown]
  - Chronic myeloid leukaemia [Unknown]
  - Hepatic steatosis [Unknown]
  - Pallor [Unknown]
  - Dyslipidaemia [Unknown]
  - Hypothyroidism [Unknown]
  - General physical health deterioration [Unknown]
  - Cardiac disorder [Unknown]
  - Normochromic normocytic anaemia [Unknown]
  - Cholelithiasis [Unknown]
  - Diabetes mellitus [Unknown]
  - Depression [Unknown]
  - Varicose vein [Unknown]
  - Peripheral swelling [Unknown]
  - Hypertension [Unknown]
  - Drug intolerance [Unknown]
  - Blood creatinine decreased [Unknown]
  - Malaise [Unknown]
  - Hyperglycaemia [Unknown]
  - Oedema peripheral [Unknown]
  - Hepatomegaly [Unknown]

NARRATIVE: CASE EVENT DATE: 20151005
